FAERS Safety Report 25723528 (Version 1)
Quarter: 2025Q3

REPORT INFORMATION
  Report Type: Spontaneous
  Country: AU (occurrence: AU)
  Receive Date: 20250825
  Receipt Date: 20250825
  Transmission Date: 20251021
  Serious: Yes (Hospitalization, Other)
  Sender: NOVO NORDISK
  Company Number: AU-NOVOPROD-1503166

PATIENT
  Age: 100 Year
  Sex: Male
  Weight: 94 kg

DRUGS (2)
  1. OZEMPIC [Suspect]
     Active Substance: SEMAGLUTIDE
     Indication: Product used for unknown indication
  2. PREDNISONE [Concomitant]
     Active Substance: PREDNISONE
     Indication: COVID-19

REACTIONS (3)
  - Blindness [Unknown]
  - Surgery [Unknown]
  - Product use in unapproved indication [Unknown]
